FAERS Safety Report 18112200 (Version 2)
Quarter: 2021Q2

REPORT INFORMATION
  Report Type: Spontaneous
  Country: IT (occurrence: IT)
  Receive Date: 20200805
  Receipt Date: 20210628
  Transmission Date: 20210717
  Serious: Yes (Hospitalization)
  Sender: FDA-Public Use
  Company Number: IT-TEVA-2020-IT-1809893

PATIENT
  Age: 44 Year
  Sex: Male

DRUGS (8)
  1. PIPERACILLIN AND TAZOBACTAM [Suspect]
     Active Substance: PIPERACILLIN SODIUM\TAZOBACTAM SODIUM
     Indication: BACTERIAL INFECTION
     Dosage: DOSE: 4.5G THREE TIMES DAILY
     Route: 065
     Dates: start: 2020
  2. LACTULOSE. [Suspect]
     Active Substance: LACTULOSE
     Indication: LIVER INJURY
     Dosage: DOSE: AVERAGE DOSE OF 25ML PER DAY
     Route: 065
     Dates: start: 2020, end: 2020
  3. LOPINAVIR/RITONAVIR [Suspect]
     Active Substance: LOPINAVIR\RITONAVIR
     Indication: COVID-19
     Route: 065
     Dates: start: 2020, end: 2020
  4. PARACETAMOL [Concomitant]
     Active Substance: ACETAMINOPHEN
     Indication: EVIDENCE BASED TREATMENT
     Route: 065
  5. TEICOPLANIN [Suspect]
     Active Substance: TEICOPLANIN
     Indication: BACTERIAL INFECTION
     Dosage: LOADING DOSE UNKNOWN
     Route: 042
     Dates: start: 2020
  6. HYDROXYCHLOROQUINE [Suspect]
     Active Substance: HYDROXYCHLOROQUINE
     Indication: COVID-19
     Route: 065
     Dates: start: 2020, end: 2020
  7. AMOXICILLIN CLAVULANATE [Suspect]
     Active Substance: AMOXICILLIN\CLAVULANIC ACID
     Indication: EVIDENCE BASED TREATMENT
     Route: 065
  8. ENOXAPARIN [Suspect]
     Active Substance: ENOXAPARIN
     Indication: THROMBOSIS PROPHYLAXIS
     Dosage: 4000UI
     Route: 058
     Dates: start: 2020, end: 2020

REACTIONS (4)
  - Liver injury [Recovered/Resolved]
  - Pneumatosis intestinalis [Recovered/Resolved]
  - Dysbiosis [Recovered/Resolved]
  - Off label use [Unknown]

NARRATIVE: CASE EVENT DATE: 2020
